FAERS Safety Report 15830759 (Version 1)
Quarter: 2019Q1

REPORT INFORMATION
  Report Type: Spontaneous
  Country: US (occurrence: US)
  Receive Date: 20190116
  Receipt Date: 20190116
  Transmission Date: 20190417
  Serious: No
  Sender: FDA-Public Use
  Company Number: US-ACCORD-072752

PATIENT
  Age: 60 Year
  Sex: Female
  Weight: 76.2 kg

DRUGS (4)
  1. HYDROCHLOROTHIAZIDE. [Suspect]
     Active Substance: HYDROCHLOROTHIAZIDE
     Indication: FLUID RETENTION
     Dates: start: 201806, end: 201808
  2. SPIRONOLACTONE. [Suspect]
     Active Substance: SPIRONOLACTONE
     Indication: FLUID RETENTION
     Dates: start: 20180628, end: 201808
  3. LOSARTAN. [Concomitant]
     Active Substance: LOSARTAN
  4. ATORVASTATIN [Concomitant]
     Active Substance: ATORVASTATIN

REACTIONS (3)
  - Papule [Recovered/Resolved]
  - Product label on wrong product [Unknown]
  - Wrong product administered [Unknown]

NARRATIVE: CASE EVENT DATE: 201808
